FAERS Safety Report 8232022-7 (Version None)
Quarter: 2012Q1

REPORT INFORMATION
  Report Type: 
  Country: None (occurrence: None)
  Receive Date: 20120321
  Receipt Date: 20120314
  Transmission Date: 20120608
  Serious: Yes (Congenital Anomaly, Other)
  Sender: FDA-Public Use
  Company Number: GER/GER/12/0023502

PATIENT
  Sex: Male
  Weight: 3.32 kg

DRUGS (3)
  1. FOLSAURE SANDOZ (FOLIC ACID) [Concomitant]
  2. LAMOTRIGINE [Suspect]
     Indication: PRODUCT USED FOR UNKNOWN INDICATION
     Dosage: 350 MG, 1 IN 1 D, TRANSPLACENTAL ; 400 MG, 1 IN 1 D, TRANSPLACENTAL
     Route: 064
     Dates: end: 20110922
  3. LAMOTRIGINE [Suspect]
     Indication: PRODUCT USED FOR UNKNOWN INDICATION
     Dosage: 350 MG, 1 IN 1 D, TRANSPLACENTAL ; 400 MG, 1 IN 1 D, TRANSPLACENTAL
     Route: 064
     Dates: start: 20101213

REACTIONS (5)
  - THROMBOCYTOSIS [None]
  - CONGENITAL ANOMALY [None]
  - HIP DYSPLASIA [None]
  - MATERNAL DRUGS AFFECTING FOETUS [None]
  - HAEMANGIOMA [None]
